FAERS Safety Report 16996246 (Version 1)
Quarter: 2019Q4

REPORT INFORMATION
  Report Type: Spontaneous
  Country: US (occurrence: US)
  Receive Date: 20191105
  Receipt Date: 20191105
  Transmission Date: 20200122
  Serious: Yes (Death, Other)
  Sender: FDA-Public Use
  Company Number: US-PFIZER INC-2019475928

PATIENT
  Sex: Female

DRUGS (4)
  1. CRESTOR [Suspect]
     Active Substance: ROSUVASTATIN CALCIUM
     Indication: BLOOD CHOLESTEROL DECREASED
     Dosage: UNK, DAILY
     Dates: start: 200805, end: 201610
  2. ROSUVASTATIN. [Suspect]
     Active Substance: ROSUVASTATIN
     Indication: BLOOD CHOLESTEROL DECREASED
     Dosage: UNK, DAILY
     Dates: start: 200805, end: 201610
  3. LIPITOR [Suspect]
     Active Substance: ATORVASTATIN CALCIUM
     Indication: BLOOD CHOLESTEROL DECREASED
     Dosage: UNK UNK, DAILY
     Dates: start: 200805, end: 201610
  4. ATORVASTATIN CALCIUM. [Suspect]
     Active Substance: ATORVASTATIN CALCIUM
     Indication: BLOOD CHOLESTEROL DECREASED
     Dosage: UNK, DAILY
     Dates: start: 200805, end: 201610

REACTIONS (3)
  - Death [Fatal]
  - Heart injury [Unknown]
  - Myocardial infarction [Unknown]
